FAERS Safety Report 10628792 (Version 1)
Quarter: 2014Q4

REPORT INFORMATION
  Report Type: Spontaneous
  Country: US (occurrence: US)
  Receive Date: 20141205
  Receipt Date: 20141205
  Transmission Date: 20150529
  Serious: No
  Sender: FDA-Public Use
  Company Number: US-BRISTOL-MYERS SQUIBB COMPANY-21333430

PATIENT
  Age: 81 Year
  Sex: Female
  Weight: 43.08 kg

DRUGS (1)
  1. COUMADIN [Suspect]
     Active Substance: WARFARIN SODIUM
     Indication: ATRIAL FIBRILLATION
     Dosage: DOSE INCREASED TO TWO 2MG TABS DAILY

REACTIONS (2)
  - Circumstance or information capable of leading to medication error [Unknown]
  - Blood test abnormal [Unknown]
